FAERS Safety Report 4408455-3 (Version None)
Quarter: 2004Q3

REPORT INFORMATION
  Report Type: 
  Country: None (occurrence: None)
  Receive Date: 20040722
  Receipt Date: 20040713
  Transmission Date: 20050211
  Serious: Yes (Hospitalization)
  Sender: FDA-Public Use
  Company Number: US-JNJFOC-20040703545

PATIENT
  Age: 48 Year
  Sex: Female

DRUGS (8)
  1. DURAGESIC [Suspect]
     Indication: PAIN
     Dosage: 100 UG/HR, 1 IN 72 HOUR, TRANSDERMAL
     Route: 062
     Dates: start: 20030701
  2. ZOLOFT [Concomitant]
  3. PREVACID [Concomitant]
  4. NEURONTIN 9GABAPENTIN) [Concomitant]
  5. PROTONIX [Concomitant]
  6. PROVIGIL [Concomitant]
  7. LOPRESSOR [Concomitant]
  8. DETROL [Concomitant]

REACTIONS (2)
  - NEUROLEPTIC MALIGNANT SYNDROME [None]
  - PNEUMONIA [None]
